FAERS Safety Report 13898745 (Version 3)
Quarter: 2017Q3

REPORT INFORMATION
  Report Type: Spontaneous
  Country: US (occurrence: US)
  Receive Date: 20170824
  Receipt Date: 20170911
  Transmission Date: 20171127
  Serious: Yes (Other)
  Sender: FDA-Public Use
  Company Number: US-GLAXOSMITHKLINE-US2017GSK130653

PATIENT
  Sex: Female
  Weight: 181.41 kg

DRUGS (1)
  1. NUCALA [Suspect]
     Active Substance: MEPOLIZUMAB
     Indication: DYSPNOEA
     Dosage: UNK
     Route: 058
     Dates: start: 201706, end: 201708

REACTIONS (6)
  - Muscle spasms [Unknown]
  - Peripheral swelling [Unknown]
  - Myalgia [Unknown]
  - Arthralgia [Unknown]
  - Cellulitis [Unknown]
  - Pain [Unknown]
